FAERS Safety Report 14235876 (Version 1)
Quarter: 2017Q4

REPORT INFORMATION
  Report Type: Report from Study
  Country: None (occurrence: US)
  Receive Date: 20171129
  Receipt Date: 20171129
  Transmission Date: 20180321
  Serious: Yes (Hospitalization, Other)
  Sender: FDA-Public Use
  Company Number: US-ABBVIE-17K-163-2172860-00

PATIENT
  Sex: Male
  Weight: 68.1 kg

DRUGS (5)
  1. METHOTREXATE. [Concomitant]
     Active Substance: METHOTREXATE
     Indication: PRODUCT USED FOR UNKNOWN INDICATION
  2. ARICEPT [Concomitant]
     Active Substance: DONEPEZIL HYDROCHLORIDE
     Indication: DEMENTIA ALZHEIMER^S TYPE
  3. HUMIRA [Suspect]
     Active Substance: ADALIMUMAB
     Indication: OSTEOARTHRITIS
  4. HUMIRA [Suspect]
     Active Substance: ADALIMUMAB
     Indication: PSORIATIC ARTHROPATHY
     Route: 058
     Dates: start: 201708
  5. BACTRIM [Suspect]
     Active Substance: SULFAMETHOXAZOLE\TRIMETHOPRIM
     Indication: CYSTITIS
     Route: 065
     Dates: start: 201711, end: 201711

REACTIONS (16)
  - Psychomotor hyperactivity [Recovered/Resolved]
  - Bladder fibrosis [Recovered/Resolved]
  - Blood urine present [Recovered/Resolved]
  - Cystitis bacterial [Recovering/Resolving]
  - Off label use [Not Recovered/Not Resolved]
  - Therapeutic response unexpected [Recovering/Resolving]
  - Blister [Recovered/Resolved]
  - Drug hypersensitivity [Recovered/Resolved]
  - Urinary incontinence [Not Recovered/Not Resolved]
  - Urinary bladder haemorrhage [Recovered/Resolved]
  - Bladder spasm [Recovered/Resolved]
  - Skin lesion [Recovered/Resolved]
  - Hallucination [Recovered/Resolved]
  - Feeling jittery [Unknown]
  - Pre-existing condition improved [Recovering/Resolving]
  - Tremor [Recovered/Resolved]

NARRATIVE: CASE EVENT DATE: 2017
